FAERS Safety Report 8562995-4 (Version None)
Quarter: 2012Q3

REPORT INFORMATION
  Report Type: 
  Country: None (occurrence: None)
  Receive Date: 20120802
  Receipt Date: 20120720
  Transmission Date: 20120928
  Serious: No
  Sender: FDA-Public Use
  Company Number: US-AMGEN-USASP2012045456

PATIENT
  Age: 39 Year
  Sex: Female

DRUGS (1)
  1. ENBREL [Suspect]
     Indication: POLYARTHRITIS
     Dosage: 50 MG, QWK
     Dates: start: 20090401, end: 20120618

REACTIONS (5)
  - RED BLOOD CELL SEDIMENTATION RATE INCREASED [None]
  - HEPATIC ENZYME INCREASED [None]
  - INJECTION SITE PAIN [None]
  - INJECTION SITE HAEMATOMA [None]
  - HERPES ZOSTER [None]
